FAERS Safety Report 9518391 (Version 1)
Quarter: 2013Q3

REPORT INFORMATION
  Report Type: Spontaneous
  Country: US (occurrence: None)
  Receive Date: 20130910
  Receipt Date: 20130910
  Transmission Date: 20140515
  Serious: No
  Sender: FDA-Public Use
  Company Number: None

PATIENT
  Sex: 0

DRUGS (1)
  1. LORAZEPAM [Suspect]

REACTIONS (7)
  - Drug effect decreased [None]
  - Oesophageal disorder [None]
  - Gastric disorder [None]
  - Gastrointestinal disorder [None]
  - Reaction to drug excipients [None]
  - Product quality issue [None]
  - Product formulation issue [None]
